FAERS Safety Report 25395089 (Version 1)
Quarter: 2025Q2

REPORT INFORMATION
  Report Type: Spontaneous
  Country: GB (occurrence: GB)
  Receive Date: 20250604
  Receipt Date: 20250604
  Transmission Date: 20250716
  Serious: Yes (Hospitalization, Other)
  Sender: RANBAXY
  Company Number: GB-SUN PHARMACEUTICAL INDUSTRIES INC-2025RR-510484

PATIENT
  Age: 34 Year
  Sex: Female

DRUGS (2)
  1. SERTRALINE [Suspect]
     Active Substance: SERTRALINE HYDROCHLORIDE
     Indication: Anxiety
     Route: 065
     Dates: start: 20250520
  2. DROSPIRENONE [Concomitant]
     Active Substance: DROSPIRENONE
     Indication: Oral contraception
     Route: 065
     Dates: start: 20250102

REACTIONS (3)
  - Seizure [Recovering/Resolving]
  - Trismus [Recovering/Resolving]
  - Tremor [Recovering/Resolving]

NARRATIVE: CASE EVENT DATE: 20250521
